FAERS Safety Report 6054542-6 (Version None)
Quarter: 2009Q1

REPORT INFORMATION
  Report Type: 
  Country: None (occurrence: None)
  Receive Date: 20090127
  Receipt Date: 20090119
  Transmission Date: 20090719
  Serious: Yes (Other)
  Sender: FDA-Public Use
  Company Number: AT-ALLERGAN-0815561US

PATIENT
  Sex: Male

DRUGS (4)
  1. LUMIGAN [Suspect]
     Indication: GLAUCOMA
     Dosage: UNK, UNK
     Route: 047
     Dates: start: 20050101, end: 20081203
  2. LUMIGAN [Suspect]
     Dosage: UNK, UNK
     Route: 047
     Dates: start: 20090102
  3. MARCUMAR [Concomitant]
     Indication: ANTICOAGULANT THERAPY
     Dates: start: 19950101
  4. MARCUMAR [Concomitant]
     Indication: THROMBOSIS

REACTIONS (1)
  - BLOOD PRESSURE INCREASED [None]
